FAERS Safety Report 8173526-5 (Version None)
Quarter: 2012Q1

REPORT INFORMATION
  Report Type: 
  Country: None (occurrence: None)
  Receive Date: 20120224
  Receipt Date: 20120127
  Transmission Date: 20120608
  Serious: Yes (Death)
  Sender: FDA-Public Use
  Company Number: FK201200365

PATIENT
  Age: 84 Year
  Sex: Female

DRUGS (5)
  1. PREDNISOLONE [Concomitant]
  2. RITUXAN [Concomitant]
  3. VINCRISTINE SULFATE [Concomitant]
  4. CYLOPHOSPHAMIDE (CYCLOPHOSPHPAMIDE) (CYCLOPHOSPHAMIDE) [Concomitant]
  5. DOXORUBICIN HCL [Suspect]
     Indication: DIFFUSE LARGE B-CELL LYMPHOMA
     Dosage: 71.5 MG, INTRAVENOUS (NOT OTHERWISE SPECIFIED)
     Route: 042
     Dates: start: 20120113

REACTIONS (1)
  - UNRESPONSIVE TO STIMULI [None]
